FAERS Safety Report 8110632-5 (Version None)
Quarter: 2012Q1

REPORT INFORMATION
  Report Type: 
  Country: None (occurrence: None)
  Receive Date: 20120203
  Receipt Date: 20120201
  Transmission Date: 20120608
  Serious: No
  Sender: FDA-Public Use
  Company Number: US-PFIZER INC-2004094802

PATIENT
  Sex: Male
  Weight: 79.365 kg

DRUGS (4)
  1. LIPITOR [Suspect]
     Indication: BLOOD CHOLESTEROL INCREASED
     Dosage: UNK
  2. LANTUS [Concomitant]
     Indication: DIABETES MELLITUS
     Dosage: 30 IU, DAILY
  3. NORVASC [Concomitant]
     Indication: CARDIAC DISORDER
     Dosage: 10 MG, DAILY
  4. NEXIUM [Concomitant]
     Indication: GASTROOESOPHAGEAL REFLUX DISEASE
     Dosage: 10 MG, DAILY

REACTIONS (2)
  - LOW DENSITY LIPOPROTEIN INCREASED [None]
  - ARTHRITIS [None]
